FAERS Safety Report 5725284-9 (Version None)
Quarter: 2008Q2

REPORT INFORMATION
  Report Type: 
  Country: None (occurrence: None)
  Receive Date: 20080501
  Receipt Date: 20080424
  Transmission Date: 20081010
  Serious: Yes (Other)
  Sender: FDA-Public Use
  Company Number: US-TYCO HEALTHCARE/MALLINCKRODT-T200800697

PATIENT

DRUGS (2)
  1. OPTIRAY 300 [Suspect]
     Indication: COMPUTERISED TOMOGRAM ABDOMEN
     Dosage: 100 ML, SINGLE
     Route: 042
     Dates: start: 20080312, end: 20080312
  2. PREDNISONE [Concomitant]
     Indication: PREMEDICATION
     Dosage: 24-HOUR PREDNISONE PRIOR TO PROCEDURE
     Dates: start: 20080311, end: 20080311

REACTIONS (10)
  - BLOOD PRESSURE INCREASED [None]
  - CHEST DISCOMFORT [None]
  - DIARRHOEA [None]
  - DYSPHAGIA [None]
  - DYSPNOEA [None]
  - HEADACHE [None]
  - MALAISE [None]
  - PHARYNGEAL OEDEMA [None]
  - SNEEZING [None]
  - VOMITING [None]
